FAERS Safety Report 9026157 (Version 1)
Quarter: 2013Q1

REPORT INFORMATION
  Report Type: Spontaneous
  Country: US (occurrence: None)
  Receive Date: 20130107
  Receipt Date: 20130107
  Transmission Date: 20140127
  Serious: Yes (Other)
  Sender: FDA-Public Use
  Company Number: TPA2012A08042

PATIENT
  Age: 69 Year
  Sex: Male
  Weight: 96.62 kg

DRUGS (1)
  1. ACTOS (PIOGLITAZONE HYDROCHLORIDE) [Suspect]
     Indication: TYPE 2 DIABETES MELLITUS
     Dosage: 1 IN 1 D
     Dates: start: 200707, end: 201104

REACTIONS (3)
  - Bladder cancer [None]
  - Cerebrovascular accident [None]
  - Cardiac failure congestive [None]
